FAERS Safety Report 11904068 (Version 2)
Quarter: 2016Q1

REPORT INFORMATION
  Report Type: Spontaneous
  Country: US (occurrence: US)
  Receive Date: 20160111
  Receipt Date: 20160309
  Transmission Date: 20160526
  Serious: No
  Sender: FDA-Public Use
  Company Number: US-ASTRAZENECA-2016SE00313

PATIENT
  Sex: Female
  Weight: 65.3 kg

DRUGS (2)
  1. TUDORZA PRESSAIR [Suspect]
     Active Substance: ACLIDINIUM BROMIDE
     Indication: SARCOIDOSIS
     Route: 055
  2. TUDORZA PRESSAIR [Suspect]
     Active Substance: ACLIDINIUM BROMIDE
     Indication: SARCOIDOSIS
     Dosage: 400 UG 1 PUFF TWICE A DAY
     Route: 055

REACTIONS (6)
  - Off label use [Unknown]
  - Lung disorder [Unknown]
  - Insomnia [Unknown]
  - Unevaluable event [Unknown]
  - Dyspnoea [Unknown]
  - Product quality issue [Unknown]
